FAERS Safety Report 6674523-9 (Version None)
Quarter: 2010Q2

REPORT INFORMATION
  Report Type: 
  Country: None (occurrence: None)
  Receive Date: 20100409
  Receipt Date: 20100330
  Transmission Date: 20101027
  Serious: Yes (Hospitalization)
  Sender: FDA-Public Use
  Company Number: US-PFIZER INC-2010040596

PATIENT
  Age: 68 Year
  Sex: Female
  Weight: 114.7 kg

DRUGS (8)
  1. BLINDED *PLACEBO [Suspect]
     Indication: NON-SMALL CELL LUNG CANCER
     Dosage: 37.5 MG, 1X/DAY
     Route: 048
     Dates: start: 20091125
  2. BLINDED SUNITINIB MALATE [Suspect]
     Indication: NON-SMALL CELL LUNG CANCER
     Dosage: 37.5 MG, 1X/DAY
     Route: 048
     Dates: start: 20091125
  3. AMBIEN [Concomitant]
  4. LOPRESSOR [Concomitant]
  5. MAXZIDE [Concomitant]
  6. NORVASC [Concomitant]
  7. POTASSIUM [Concomitant]
  8. ZANTAC [Concomitant]

REACTIONS (3)
  - DYSPNOEA [None]
  - HYPOXIA [None]
  - LEFT VENTRICULAR DYSFUNCTION [None]
